FAERS Safety Report 6316635-5 (Version None)
Quarter: 2009Q3

REPORT INFORMATION
  Report Type: 
  Country: None (occurrence: None)
  Receive Date: 20090820
  Receipt Date: 20090720
  Transmission Date: 20100115
  Serious: Yes (Death, Hospitalization)
  Sender: FDA-Public Use
  Company Number: PT-BAXTER-2009BH010605

PATIENT
  Age: 73 Year
  Sex: Female

DRUGS (4)
  1. EXTRANEAL [Suspect]
     Indication: PERITONEAL DIALYSIS
     Route: 033
     Dates: start: 20090701, end: 20090712
  2. EXTRANEAL [Suspect]
     Route: 033
  3. PHYSIOSOL IN PLASTIC CONTAINER [Suspect]
     Indication: PERITONEAL DIALYSIS
     Route: 033
     Dates: start: 20090701, end: 20090712
  4. PHYSIOSOL IN PLASTIC CONTAINER [Suspect]
     Route: 033

REACTIONS (4)
  - LEUKAEMIA [None]
  - MYELOPROLIFERATIVE DISORDER [None]
  - PERITONITIS BACTERIAL [None]
  - SEPSIS [None]
